FAERS Safety Report 5878685-2 (Version None)
Quarter: 2008Q3

REPORT INFORMATION
  Report Type: 
  Country: None (occurrence: None)
  Receive Date: 20080910
  Receipt Date: 20080910
  Transmission Date: 20090109
  Serious: No
  Sender: FDA-Public Use
  Company Number: None

PATIENT
  Sex: Female
  Weight: 25.855 kg

DRUGS (1)
  1. CONCERTA [Suspect]
     Indication: ATTENTION DEFICIT/HYPERACTIVITY DISORDER
     Dosage: ONE TABLET EVERY MORNING PO
     Route: 048
     Dates: start: 20080906, end: 20080906

REACTIONS (19)
  - ABNORMAL BEHAVIOUR [None]
  - AGGRESSION [None]
  - CONFUSIONAL STATE [None]
  - CRYING [None]
  - DISORIENTATION [None]
  - EMOTIONAL DISORDER [None]
  - HEART RATE INCREASED [None]
  - INSOMNIA [None]
  - INTENTIONAL SELF-INJURY [None]
  - MENTAL IMPAIRMENT [None]
  - MYDRIASIS [None]
  - OBSESSIVE THOUGHTS [None]
  - ONYCHOPHAGIA [None]
  - PERSONALITY CHANGE [None]
  - SCREAMING [None]
  - SKIN DISORDER [None]
  - SPEECH DISORDER [None]
  - SUICIDAL IDEATION [None]
  - THINKING ABNORMAL [None]
